FAERS Safety Report 5989351-7 (Version None)
Quarter: 2008Q4

REPORT INFORMATION
  Report Type: 
  Country: None (occurrence: None)
  Receive Date: 20081205
  Receipt Date: 20081120
  Transmission Date: 20090506
  Serious: Yes (Other)
  Sender: FDA-Public Use
  Company Number: 2008S1020849

PATIENT
  Age: 32 Year
  Sex: Male

DRUGS (13)
  1. CIPROFLOXACIN HYDROCHLORIDE [Suspect]
     Indication: PYREXIA
     Dosage: INTRAVENOUS
     Route: 042
     Dates: start: 20080904, end: 20080914
  2. CIPROFLOXACIN HYDROCHLORIDE [Suspect]
     Indication: PYREXIA
     Dosage: INTRAVENOUS
     Route: 042
     Dates: start: 20080927, end: 20081014
  3. VIDAZA [Suspect]
     Indication: MYELODYSPLASTIC SYNDROME
     Dates: start: 20071001, end: 20080218
  4. VFEND [Suspect]
     Indication: ASPERGILLOSIS
     Dates: start: 20071101, end: 20080912
  5. SANDIMMUNE [Suspect]
     Indication: PROPHYLAXIS
     Dosage: 3 MG/KG
     Dates: start: 20080910, end: 20081017
  6. BARACLUDE [Suspect]
     Indication: HEPATITIS B
     Dates: start: 20070601
  7. NOVANTRONE [Concomitant]
  8. CYTARABINE [Concomitant]
  9. ISOPTIN [Concomitant]
  10. BUSILVEX [Concomitant]
  11. MELPHALAN [Concomitant]
  12. MYFORTIC  /01275101/ [Concomitant]
  13. ROCEPHIN [Concomitant]

REACTIONS (4)
  - CONDITION AGGRAVATED [None]
  - INSOMNIA [None]
  - NEURALGIA [None]
  - PARAESTHESIA [None]
